FAERS Safety Report 12175187 (Version 1)
Quarter: 2016Q1

REPORT INFORMATION
  Report Type: Spontaneous
  Country: US (occurrence: US)
  Receive Date: 20160314
  Receipt Date: 20160314
  Transmission Date: 20160526
  Serious: Yes (Hospitalization)
  Sender: FDA-Public Use
  Company Number: US-NOVOPROD-483277

PATIENT
  Sex: Female

DRUGS (2)
  1. TRESIBA FLEXTOUCH [Suspect]
     Active Substance: INSULIN DEGLUDEC
     Indication: PRODUCT USED FOR UNKNOWN INDICATION
     Dosage: 160 U, QD
     Route: 058
     Dates: start: 201512
  2. TRESIBA FLEXTOUCH [Suspect]
     Active Substance: INSULIN DEGLUDEC
     Dosage: 120 U, QD
     Route: 058

REACTIONS (3)
  - Hospitalisation [Unknown]
  - Blood glucose decreased [Unknown]
  - Impaired gastric emptying [Not Recovered/Not Resolved]
